FAERS Safety Report 10100752 (Version 1)
Quarter: 2014Q2

REPORT INFORMATION
  Report Type: Spontaneous
  Country: US (occurrence: US)
  Receive Date: 20140423
  Receipt Date: 20140423
  Transmission Date: 20141212
  Serious: No
  Sender: FDA-Public Use
  Company Number: US-009507513-1404USA005955

PATIENT
  Sex: Male

DRUGS (1)
  1. DR. SCHOLL^S CLEAR AWAY WART REMOVER FAST-ACTING LIQUID [Suspect]
     Indication: SKIN PAPILLOMA
     Dosage: UNK, UNKNOWN
     Route: 061
     Dates: start: 2014

REACTIONS (1)
  - Skin disorder [Unknown]
